FAERS Safety Report 20700131 (Version 1)
Quarter: 2022Q2

REPORT INFORMATION
  Report Type: Report from Study
  Country: US (occurrence: US)
  Receive Date: 20220412
  Receipt Date: 20220412
  Transmission Date: 20220721
  Serious: Yes (Hospitalization, Other)
  Sender: FDA-Public Use
  Company Number: US-VERTEX PHARMACEUTICALS-2019-003545

PATIENT
  Sex: Female

DRUGS (2)
  1. KALYDECO [Suspect]
     Active Substance: IVACAFTOR
     Indication: Cystic fibrosis
     Dosage: 150 MG, BID (REGULAR)
     Route: 048
     Dates: start: 20121219
  2. PROZAC [Concomitant]
     Active Substance: FLUOXETINE HYDROCHLORIDE

REACTIONS (11)
  - Suicidal ideation [Recovering/Resolving]
  - Depression [Recovering/Resolving]
  - Fatigue [Unknown]
  - Crying [Unknown]
  - Dysarthria [Unknown]
  - Respiratory disorder [Unknown]
  - Myalgia [Unknown]
  - Oropharyngeal pain [Unknown]
  - Headache [Unknown]
  - Abnormal behaviour [Unknown]
  - Anxiety [Unknown]

NARRATIVE: CASE EVENT DATE: 20120101
